FAERS Safety Report 12886388 (Version 1)
Quarter: 2016Q4

REPORT INFORMATION
  Report Type: Spontaneous
  Country: US (occurrence: US)
  Receive Date: 20161026
  Receipt Date: 20161026
  Transmission Date: 20170207
  Serious: Yes (Life-Threatening, Hospitalization, Other)
  Sender: FDA-Public Use
  Company Number: US-MYLANLABS-2016M1045867

PATIENT

DRUGS (3)
  1. DIPHENHYDRAMINE. [Concomitant]
     Active Substance: DIPHENHYDRAMINE
     Indication: URTICARIA
     Route: 042
  2. EPINEPHRINE. [Suspect]
     Active Substance: EPINEPHRINE
     Indication: URTICARIA
     Dosage: 0.5MG
     Route: 042
  3. METHYLPREDNISOLONE. [Concomitant]
     Active Substance: METHYLPREDNISOLONE
     Indication: URTICARIA
     Route: 065

REACTIONS (2)
  - Stress cardiomyopathy [Recovered/Resolved]
  - Incorrect route of drug administration [Recovered/Resolved]
